FAERS Safety Report 9912855 (Version 1)
Quarter: 2014Q1

REPORT INFORMATION
  Report Type: Spontaneous
  Country: US (occurrence: None)
  Receive Date: 20140218
  Receipt Date: 20140218
  Transmission Date: 20141002
  Serious: Yes (Hospitalization, Disabling)
  Sender: FDA-Public Use
  Company Number: None

PATIENT
  Age: 53 Year
  Sex: Female
  Weight: 47.63 kg

DRUGS (1)
  1. CORTICOSTEROID NOS [Suspect]

REACTIONS (7)
  - Injection site pain [None]
  - Procedural pain [None]
  - Abasia [None]
  - Muscle twitching [None]
  - Weight bearing difficulty [None]
  - Impaired work ability [None]
  - Activities of daily living impaired [None]
